FAERS Safety Report 6510874-6 (Version None)
Quarter: 2009Q4

REPORT INFORMATION
  Report Type: 
  Country: None (occurrence: None)
  Receive Date: 20091222
  Receipt Date: 20090309
  Transmission Date: 20100525
  Serious: No
  Sender: FDA-Public Use
  Company Number: US-ASTRAZENECA-2009UW00830

PATIENT
  Age: 69 Year
  Sex: Female
  Weight: 116.6 kg

DRUGS (7)
  1. CRESTOR [Suspect]
     Indication: BLOOD CHOLESTEROL INCREASED
     Dosage: 10 MG
     Route: 048
     Dates: start: 20081230
  2. LOPRESSOR [Concomitant]
  3. GLUCOPHAGE [Concomitant]
  4. SYNTHROID [Concomitant]
  5. MULTI-VITAMIN [Concomitant]
  6. FERROUS SULFATE TAB [Concomitant]
  7. GLIPIZIDE [Concomitant]

REACTIONS (4)
  - FEELING DRUNK [None]
  - GAIT DISTURBANCE [None]
  - HALLUCINATION [None]
  - MUSCULAR WEAKNESS [None]
